FAERS Safety Report 14702507 (Version 1)
Quarter: 2018Q2

REPORT INFORMATION
  Report Type: Spontaneous
  Country: FR (occurrence: FR)
  Receive Date: 20180401
  Receipt Date: 20180401
  Transmission Date: 20180711
  Serious: Yes (Other)
  Sender: FDA-Public Use
  Company Number: FR-MERCK KGAA-2044846

PATIENT
  Age: 57 Year
  Sex: Female

DRUGS (1)
  1. NOVOTHYROX [Suspect]
     Active Substance: LEVOTHYROXINE SODIUM
     Indication: POST PROCEDURAL HYPOTHYROIDISM

REACTIONS (16)
  - Somnolence [Recovering/Resolving]
  - Fibromyalgia [Recovering/Resolving]
  - Anxiety [Recovering/Resolving]
  - Weight increased [Recovering/Resolving]
  - Stress [Recovering/Resolving]
  - Asthenia [Recovering/Resolving]
  - Dementia Alzheimer^s type [None]
  - Apallic syndrome [Recovering/Resolving]
  - Fatigue [Recovering/Resolving]
  - Mood swings [Recovering/Resolving]
  - Pain [Recovering/Resolving]
  - Amnesia [Recovering/Resolving]
  - Social avoidant behaviour [Recovering/Resolving]
  - Depressed mood [Recovering/Resolving]
  - Altered state of consciousness [Recovering/Resolving]
  - Loss of personal independence in daily activities [None]

NARRATIVE: CASE EVENT DATE: 201705
